FAERS Safety Report 10699207 (Version 3)
Quarter: 2015Q1

REPORT INFORMATION
  Report Type: Spontaneous
  Country: US (occurrence: US)
  Receive Date: 20150108
  Receipt Date: 20150128
  Transmission Date: 20150721
  Serious: Yes (Hospitalization, Other)
  Sender: FDA-Public Use
  Company Number: US-GILEAD-2014-0129819

PATIENT
  Age: 61 Year
  Sex: Female

DRUGS (9)
  1. LETAIRIS [Suspect]
     Active Substance: AMBRISENTAN
     Indication: PRODUCT USED FOR UNKNOWN INDICATION
     Dosage: UNK, U
     Route: 065
  2. FLOLAN [Suspect]
     Active Substance: EPOPROSTENOL SODIUM
     Dosage: UNK
     Dates: start: 20010329
  3. TYVASO [Suspect]
     Active Substance: TREPROSTINIL
     Indication: PRODUCT USED FOR UNKNOWN INDICATION
     Dosage: UNK, U
     Route: 065
  4. FLOLAN [Suspect]
     Active Substance: EPOPROSTENOL SODIUM
     Indication: PULMONARY ARTERIAL HYPERTENSION
     Dosage: 41 NG/KG/MIN; CONCENTRATION 45,000 NG/ML; PUMP RATE 67 ML/DAY; VIAL STRENGTH 1.5 MG, CO
     Route: 042
     Dates: start: 20010329
  5. WARFARIN [Concomitant]
     Active Substance: WARFARIN
  6. ADCIRCA [Suspect]
     Active Substance: TADALAFIL
     Indication: PRODUCT USED FOR UNKNOWN INDICATION
     Dosage: UNK, U
     Route: 065
  7. FLOLAN [Suspect]
     Active Substance: EPOPROSTENOL SODIUM
     Dosage: 41 NG/KG/MIN; CONCENTRATION 45,000 NG/ML; PUMP RATE 67 ML/DAY; VIAL STRENGTH 1.5 MG, CO
     Dates: start: 20010329
  8. FLOLAN [Suspect]
     Active Substance: EPOPROSTENOL SODIUM
     Dosage: 41 NG/KG/MIN CONTINUOUS
     Dates: start: 20010329
  9. FLOLAN [Suspect]
     Active Substance: EPOPROSTENOL SODIUM
     Dosage: 51 NG/KG/MIN, CO
     Route: 042

REACTIONS (5)
  - Central venous catheter removal [Recovered/Resolved]
  - Central venous catheter removal [Recovered/Resolved]
  - Device related infection [Unknown]
  - Central venous catheterisation [Recovered/Resolved]
  - Malaise [Unknown]

NARRATIVE: CASE EVENT DATE: 201403
